FAERS Safety Report 6662913-X (Version None)
Quarter: 2010Q2

REPORT INFORMATION
  Report Type: 
  Country: None (occurrence: None)
  Receive Date: 20100401
  Receipt Date: 20100324
  Transmission Date: 20101027
  Serious: Yes (Other)
  Sender: FDA-Public Use
  Company Number: US-JNJFOC-20100307885

PATIENT
  Sex: Female
  Weight: 54.43 kg

DRUGS (2)
  1. DURAGESIC-100 [Suspect]
     Indication: PAIN
     Dosage: 100 AND 25 UG/HR
     Route: 062
  2. FENTANYL-100 [Suspect]
     Indication: PAIN
     Route: 062

REACTIONS (4)
  - H1N1 INFLUENZA [None]
  - PAIN [None]
  - PNEUMONIA [None]
  - STAPHYLOCOCCAL INFECTION [None]
